FAERS Safety Report 9361763 (Version 2)
Quarter: 2013Q3

REPORT INFORMATION
  Report Type: Report from Study
  Country: JP (occurrence: JP)
  Receive Date: 20130621
  Receipt Date: 20130910
  Transmission Date: 20140515
  Serious: Yes (Hospitalization)
  Sender: FDA-Public Use
  Company Number: JP-BRISTOL-MYERS SQUIBB COMPANY-19029164

PATIENT
  Age: 58 Year
  Sex: Male

DRUGS (6)
  1. STOCRIN CAPS 200 MG [Suspect]
     Indication: HIV INFECTION
     Dosage: CAP 200MG?19SEP01-12DEC01;?06FEB02-31MAY12
     Route: 048
     Dates: start: 20010919, end: 20120531
  2. ISENTRESS [Suspect]
     Indication: HIV INFECTION
     Route: 048
     Dates: start: 20120601
  3. KALETRA [Suspect]
     Indication: HIV INFECTION
     Dosage: 06FEB02-07NOV06:8DF?08NOV06-06MAR07:6DF?07MAR07-31MAR11:4DF?01APR11-31MAY12:2DF?2TAB TWICE A DAY
     Route: 048
     Dates: start: 20020206, end: 20120531
  4. TRUVADA [Suspect]
     Indication: HIV INFECTION
     Route: 048
     Dates: start: 20050824, end: 20120531
  5. LOPEMIN [Concomitant]
  6. DIOVAN [Concomitant]
     Dates: end: 20120521

REACTIONS (5)
  - Femur fracture [Recovering/Resolving]
  - Blood alkaline phosphatase increased [Not Recovered/Not Resolved]
  - Gynaecomastia [Recovering/Resolving]
  - Hyperthyroidism [Not Recovered/Not Resolved]
  - White blood cell count increased [Recovered/Resolved]
